FAERS Safety Report 25111759 (Version 2)
Quarter: 2025Q2

REPORT INFORMATION
  Report Type: Spontaneous
  Country: JP (occurrence: JP)
  Receive Date: 20250324
  Receipt Date: 20250430
  Transmission Date: 20250717
  Serious: Yes (Hospitalization)
  Sender: ASTELLAS
  Company Number: JP-ASTELLAS-2025-AER-015476

PATIENT
  Age: 5 Decade
  Sex: Male

DRUGS (6)
  1. VYLOY [Suspect]
     Active Substance: ZOLBETUXIMAB-CLZB
     Indication: Product used for unknown indication
     Route: 042
     Dates: start: 20250129, end: 20250220
  2. VYLOY [Suspect]
     Active Substance: ZOLBETUXIMAB-CLZB
     Route: 042
  3. CAPECITABINE [Suspect]
     Active Substance: CAPECITABINE
     Indication: Product used for unknown indication
     Route: 065
  4. OXALIPLATIN [Concomitant]
     Active Substance: OXALIPLATIN
     Indication: Product used for unknown indication
     Route: 065
  5. FLUOROURACIL [Concomitant]
     Active Substance: FLUOROURACIL
     Indication: Product used for unknown indication
     Route: 065
  6. LEVOLEUCOVORIN CALCIUM [Concomitant]
     Active Substance: LEVOLEUCOVORIN CALCIUM
     Indication: Product used for unknown indication
     Route: 065

REACTIONS (2)
  - Gastritis [Unknown]
  - Vomiting [Unknown]
